FAERS Safety Report 4380734-8 (Version None)
Quarter: 2004Q2

REPORT INFORMATION
  Report Type: 
  Country: None (occurrence: None)
  Receive Date: 20040616
  Receipt Date: 20040602
  Transmission Date: 20050107
  Serious: Yes (Hospitalization)
  Sender: FDA-Public Use
  Company Number: S04-SWI-02355-01

PATIENT
  Age: 41 Year
  Sex: Female

DRUGS (3)
  1. CITALOPRAM HYDROBROMIDE [Suspect]
     Dosage: 400 MG ONCE PO
     Dates: start: 20040507, end: 20040507
  2. LORAZEPAM [Suspect]
     Dosage: 37.5 MG ONCE PO
     Dates: start: 20040507, end: 20040507
  3. ALCOHOL [Suspect]
     Dates: start: 20040507, end: 20040507

REACTIONS (6)
  - AGITATION [None]
  - BRONCHOSPASM [None]
  - DRUG ABUSER [None]
  - INTENTIONAL OVERDOSE [None]
  - SOMNOLENCE [None]
  - VENTRICULAR TACHYCARDIA [None]
